FAERS Safety Report 19508171 (Version 26)
Quarter: 2024Q2

REPORT INFORMATION
  Report Type: Spontaneous
  Country: JP (occurrence: JP)
  Receive Date: 20210708
  Receipt Date: 20240401
  Transmission Date: 20240716
  Serious: Yes (Hospitalization, Other)
  Sender: FDA-Public Use
  Company Number: JP-BRISTOL-MYERS SQUIBB COMPANY-BMS-2021-027873

PATIENT
  Age: 85 Year
  Sex: Female
  Weight: 49.5 kg

DRUGS (19)
  1. YERVOY [Suspect]
     Active Substance: IPILIMUMAB
     Indication: Thymic carcinoma
     Dosage: 1 MG/KG, Q6W
     Route: 041
     Dates: start: 20210303, end: 20210303
  2. YERVOY [Suspect]
     Active Substance: IPILIMUMAB
     Indication: Lung neoplasm malignant
  3. OPDIVO [Suspect]
     Active Substance: NIVOLUMAB
     Indication: Lung neoplasm malignant
     Route: 041
     Dates: start: 20210303, end: 20210303
  4. OPDIVO [Suspect]
     Active Substance: NIVOLUMAB
     Indication: Thymic carcinoma
  5. PREDONINE [Suspect]
     Active Substance: PREDNISOLONE
     Indication: Pyrexia
     Dates: start: 20210312, end: 20210322
  6. PREDONINE [Suspect]
     Active Substance: PREDNISOLONE
     Dates: start: 20210323
  7. PREDONINE [Suspect]
     Active Substance: PREDNISOLONE
     Dosage: GRADUALLY REDUCED AT 5 MG/WEEK
  8. PREDONINE [Suspect]
     Active Substance: PREDNISOLONE
     Dates: start: 20210618
  9. ACETAMINOPHEN [Concomitant]
     Active Substance: ACETAMINOPHEN
     Indication: Product used for unknown indication
     Route: 048
     Dates: start: 20210303
  10. AMPICILLIN SODIUM\SULBACTAM SODIUM [Concomitant]
     Active Substance: AMPICILLIN SODIUM\SULBACTAM SODIUM
     Indication: Product used for unknown indication
     Route: 041
     Dates: start: 20210308, end: 20210317
  11. SULFAMETHOXAZOLE\TRIMETHOPRIM [Concomitant]
     Active Substance: SULFAMETHOXAZOLE\TRIMETHOPRIM
     Indication: Product used for unknown indication
     Route: 048
     Dates: start: 20210312
  12. LANSOPRAZOLE [Concomitant]
     Active Substance: LANSOPRAZOLE
     Indication: Product used for unknown indication
     Route: 048
     Dates: start: 20210312
  13. EPRAZINONE [Concomitant]
     Active Substance: EPRAZINONE
     Indication: Product used for unknown indication
     Route: 048
     Dates: start: 20210306
  14. AMBROXOL [Concomitant]
     Active Substance: AMBROXOL
     Indication: Product used for unknown indication
     Dosage: 15
     Dates: start: 20210306
  15. VONOPRAZAN FUMARATE [Concomitant]
     Active Substance: VONOPRAZAN FUMARATE
     Indication: Product used for unknown indication
     Route: 048
  16. STROCAIN [OXETACAINE] [Concomitant]
     Indication: Product used for unknown indication
     Route: 048
  17. CYMBALTA [Concomitant]
     Active Substance: DULOXETINE HYDROCHLORIDE
     Indication: Prophylaxis
     Route: 048
  18. CALCIUM CARBONATE [Concomitant]
     Active Substance: CALCIUM CARBONATE
     Indication: Product used for unknown indication
     Dosage: 3.6 G, Q8H, GRAIN
     Route: 048
  19. BELSOMRA [Concomitant]
     Active Substance: SUVOREXANT
     Indication: Prophylaxis
     Dosage: 15 MG, EVERYDA
     Route: 048

REACTIONS (8)
  - Tumour pseudoprogression [Recovered/Resolved]
  - Infusion related reaction [Recovered/Resolved]
  - Erythema [Recovered/Resolved]
  - Arthralgia [Recovered/Resolved]
  - Gastric ulcer [Recovered/Resolved]
  - Oesophagitis [Unknown]
  - Chronic gastritis [Unknown]
  - Dementia [Unknown]

NARRATIVE: CASE EVENT DATE: 20210303
